FAERS Safety Report 7995032-0 (Version None)
Quarter: 2011Q4

REPORT INFORMATION
  Report Type: 
  Country: None (occurrence: None)
  Receive Date: 20111220
  Receipt Date: 20111214
  Transmission Date: 20120403
  Serious: Yes (Hospitalization, Other)
  Sender: FDA-Public Use
  Company Number: FR-PFIZER INC-2011303806

PATIENT
  Age: 51 Year
  Sex: Male

DRUGS (6)
  1. KETOPROFEN [Suspect]
     Indication: ARTHRALGIA
     Dosage: UNK
     Dates: start: 20110706, end: 20110713
  2. SULFASALAZINE [Suspect]
     Dosage: UNK
     Route: 048
     Dates: start: 20110706, end: 20110713
  3. ALPRAZOLAM [Concomitant]
  4. SULFASALAZINE [Suspect]
     Indication: ANKYLOSING SPONDYLITIS
     Dosage: UNK
     Route: 048
  5. TETRAZEPAM [Suspect]
     Indication: ARTHRALGIA
     Dosage: UNK
     Route: 048
     Dates: start: 20110706, end: 20110713
  6. NEXIUM [Concomitant]

REACTIONS (2)
  - BONE MARROW FAILURE [None]
  - DRUG RASH WITH EOSINOPHILIA AND SYSTEMIC SYMPTOMS [None]
